FAERS Safety Report 13482532 (Version 6)
Quarter: 2018Q1

REPORT INFORMATION
  Report Type: Spontaneous
  Country: US (occurrence: US)
  Receive Date: 20170426
  Receipt Date: 20180220
  Transmission Date: 20180508
  Serious: No
  Sender: FDA-Public Use
  Company Number: PHEH2017US012176

PATIENT
  Sex: Female
  Weight: 62.59 kg

DRUGS (3)
  1. ZOFRAN [Suspect]
     Active Substance: ONDANSETRON HYDROCHLORIDE
     Indication: VOMITING IN PREGNANCY
     Dosage: 04 MG, Q6H
     Route: 048
     Dates: start: 20050511, end: 200506
  2. ZOFRAN ODT [Suspect]
     Active Substance: ONDANSETRON HYDROCHLORIDE
     Indication: PRODUCT USED FOR UNKNOWN INDICATION
     Route: 048
  3. ZOFRAN [Suspect]
     Active Substance: ONDANSETRON HYDROCHLORIDE
     Indication: VOMITING IN PREGNANCY
     Dosage: 04 MG, Q6H
     Route: 042
     Dates: start: 20050510, end: 20050510

REACTIONS (4)
  - Maternal exposure during pregnancy [Unknown]
  - Emotional distress [Unknown]
  - Injury [Unknown]
  - Product use in unapproved indication [Unknown]
